FAERS Safety Report 7672430-6 (Version None)
Quarter: 2011Q3

REPORT INFORMATION
  Report Type: 
  Country: None (occurrence: None)
  Receive Date: 20110809
  Receipt Date: 20110729
  Transmission Date: 20111222
  Serious: Yes (Hospitalization, Other)
  Sender: FDA-Public Use
  Company Number: US-MERCK-1105USA01175

PATIENT
  Age: 72 Year
  Sex: Female

DRUGS (11)
  1. ACTONEL [Concomitant]
     Indication: OSTEOPOROSIS
     Route: 048
     Dates: start: 20090401, end: 20091001
  2. CALCIUM (UNSPECIFIED) AND VITAMIN D (UNSPECIFIED) [Concomitant]
     Route: 048
     Dates: start: 20010101
  3. FOSAMAX [Suspect]
     Indication: OSTEOPOROSIS
     Route: 048
     Dates: start: 20010301, end: 20090401
  4. AMLODIPINE [Concomitant]
     Indication: HYPERTENSION
     Route: 048
     Dates: start: 20070101
  5. ASCORBIC ACID [Concomitant]
     Route: 048
     Dates: start: 20010101
  6. BISOPROLOL [Concomitant]
     Indication: HYPERTENSION
     Route: 048
     Dates: start: 20070101
  7. NEXIUM [Concomitant]
     Route: 048
     Dates: start: 20060101
  8. SYNTHROID [Concomitant]
     Indication: THYROID DISORDER
     Route: 048
     Dates: start: 20070101
  9. LOVASTATIN [Concomitant]
     Indication: BLOOD CHOLESTEROL INCREASED
     Route: 048
     Dates: start: 20050101
  10. ESOMEPRAZOLE [Concomitant]
     Route: 048
     Dates: start: 20060101
  11. HYDROCHLOROTHIAZIDE [Concomitant]
     Indication: HYPERTENSION
     Route: 048
     Dates: start: 20070101

REACTIONS (7)
  - GASTROOESOPHAGEAL REFLUX DISEASE [None]
  - ARTHRALGIA [None]
  - BACK PAIN [None]
  - FEMUR FRACTURE [None]
  - ANGIOPATHY [None]
  - ARTHROPATHY [None]
  - CALCIUM DEFICIENCY [None]
